FAERS Safety Report 9386773 (Version 2)
Quarter: 2013Q3

REPORT INFORMATION
  Report Type: Spontaneous
  Country: US (occurrence: US)
  Receive Date: 20130708
  Receipt Date: 20130718
  Transmission Date: 20140515
  Serious: No
  Sender: FDA-Public Use
  Company Number: US-PFIZER INC-2013199310

PATIENT
  Sex: Male

DRUGS (1)
  1. LYRICA [Suspect]
     Indication: LIMB DISCOMFORT
     Dosage: 50 MG, UNK

REACTIONS (3)
  - Oropharyngeal pain [Unknown]
  - Diarrhoea [Unknown]
  - Drug ineffective [Unknown]
